FAERS Safety Report 13403220 (Version 1)
Quarter: 2017Q2

REPORT INFORMATION
  Report Type: Spontaneous
  Country: US (occurrence: US)
  Receive Date: 20170404
  Receipt Date: 20170404
  Transmission Date: 20170830
  Serious: Yes (Other)
  Sender: FDA-Public Use
  Company Number: US-ROCHE-1852820

PATIENT
  Sex: Female

DRUGS (2)
  1. AVASTIN [Suspect]
     Active Substance: BEVACIZUMAB
     Indication: OVARIAN CANCER
     Route: 042
  2. ABRAXANE [Concomitant]
     Active Substance: PACLITAXEL
     Dosage: FOR 6 MONTHS
     Route: 065
     Dates: start: 2016

REACTIONS (2)
  - Thrombocytopenia [Unknown]
  - Hypertension [Unknown]
